FAERS Safety Report 7389030-8 (Version None)
Quarter: 2011Q2

REPORT INFORMATION
  Report Type: 
  Country: None (occurrence: None)
  Receive Date: 20110401
  Receipt Date: 20110321
  Transmission Date: 20111010
  Serious: Yes (Death, Other)
  Sender: FDA-Public Use
  Company Number: US-ENDO PHARMACEUTICALS INC.-METO20110285

PATIENT
  Sex: Female

DRUGS (1)
  1. METOCLOPRAMIDE HYDROCHLORIDE [Suspect]
     Dosage: UNK
     Route: 048
     Dates: start: 20040301, end: 20090501

REACTIONS (12)
  - RESTLESS LEGS SYNDROME [None]
  - TARDIVE DYSKINESIA [None]
  - CHOREA [None]
  - DEATH [None]
  - DYSPHAGIA [None]
  - MYOCLONUS [None]
  - PARKINSON'S DISEASE [None]
  - TREMOR [None]
  - EXTRAPYRAMIDAL DISORDER [None]
  - DYSTONIA [None]
  - PARKINSONISM [None]
  - DYSKINESIA [None]
